FAERS Safety Report 6449104-2 (Version None)
Quarter: 2009Q4

REPORT INFORMATION
  Report Type: 
  Country: None (occurrence: None)
  Receive Date: 20091120
  Receipt Date: 20091110
  Transmission Date: 20100525
  Serious: Yes (Hospitalization, Other)
  Sender: FDA-Public Use
  Company Number: FR-ABBOTT-09P-056-0579770-00

PATIENT
  Sex: Male

DRUGS (17)
  1. HUMIRA [Suspect]
     Indication: MUSCULOSKELETAL PAIN
     Dates: start: 20080101, end: 20090519
  2. HUMIRA [Suspect]
     Indication: PSORIATIC ARTHROPATHY
  3. METHOTREXATE [Suspect]
     Indication: MUSCULOSKELETAL PAIN
     Dates: start: 20040101, end: 20090519
  4. METHOTREXATE [Suspect]
     Indication: PSORIATIC ARTHROPATHY
  5. CORTANCYL [Suspect]
     Indication: PSORIATIC ARTHROPATHY
     Dosage: 7-10 MG/DAY
  6. CORTANCYL [Suspect]
     Indication: MUSCULOSKELETAL PAIN
  7. PREDNISONE [Suspect]
     Indication: DRUG USE FOR UNKNOWN INDICATION
     Dates: start: 20040101
  8. RAMIPRIL [Suspect]
     Indication: DRUG USE FOR UNKNOWN INDICATION
     Dosage: 10 MG DAILY
  9. AMLODIPINE [Concomitant]
     Indication: DRUG USE FOR UNKNOWN INDICATION
     Dosage: 10 MG DAILY
  10. FLUINDIONE [Concomitant]
     Indication: DEEP VEIN THROMBOSIS
     Dosage: 20 MG DAILY
  11. TAMSULOSINE [Concomitant]
     Indication: DRUG USE FOR UNKNOWN INDICATION
     Dosage: 0.4 MG DAILY
  12. CALCIUM, CHOLECALCIFEROL [Concomitant]
     Indication: DRUG USE FOR UNKNOWN INDICATION
  13. PHYTOTHERAPY DRUG [Concomitant]
     Indication: DRUG USE FOR UNKNOWN INDICATION
  14. FOLIC ACID [Concomitant]
     Indication: DRUG USE FOR UNKNOWN INDICATION
     Dosage: 5 MG DAILY
  15. CHLORURE POTASSIUM [Concomitant]
     Indication: DRUG USE FOR UNKNOWN INDICATION
  16. ACETAMINOPHEN WITH PROPOXYPHENE HCL TAB [Concomitant]
     Indication: DRUG USE FOR UNKNOWN INDICATION
  17. RILMENIDINE [Concomitant]
     Indication: DRUG USE FOR UNKNOWN INDICATION

REACTIONS (11)
  - ARTHRITIS BACTERIAL [None]
  - INFLAMMATION [None]
  - INTERVERTEBRAL DISCITIS [None]
  - PYREXIA [None]
  - QUADRIPARESIS [None]
  - QUADRIPLEGIA [None]
  - SPINAL CORD COMPRESSION [None]
  - STAPHYLOCOCCAL ABSCESS [None]
  - STAPHYLOCOCCAL BACTERAEMIA [None]
  - STAPHYLOCOCCAL SEPSIS [None]
  - URINARY TRACT INFECTION STAPHYLOCOCCAL [None]
